FAERS Safety Report 14211491 (Version 1)
Quarter: 2017Q4

REPORT INFORMATION
  Report Type: Other
  Country: US (occurrence: US)
  Receive Date: 20171121
  Receipt Date: 20171121
  Transmission Date: 20180321
  Serious: Yes (Hospitalization)
  Sender: FDA-Public Use
  Company Number: US-DOLGENCORP-2034793

PATIENT
  Sex: Female

DRUGS (3)
  1. NOVOLIN 70/30 [Concomitant]
     Active Substance: INSULIN HUMAN
  2. EZ NITE SLEEP [Suspect]
     Active Substance: DIPHENHYDRAMINE HYDROCHLORIDE
     Indication: INITIAL INSOMNIA
     Route: 048
     Dates: start: 20171101, end: 20171101
  3. METFORMIN [Concomitant]
     Active Substance: METFORMIN HYDROCHLORIDE

REACTIONS (6)
  - Asthenia [Recovered/Resolved]
  - Vomiting [Recovered/Resolved]
  - Hyperhidrosis [Recovered/Resolved]
  - Loss of consciousness [None]
  - Incorrect dose administered [None]
  - Drug interaction [None]

NARRATIVE: CASE EVENT DATE: 20171101
